FAERS Safety Report 9994868 (Version 2)
Quarter: 2014Q1

REPORT INFORMATION
  Report Type: Spontaneous
  Country: US (occurrence: US)
  Receive Date: 20140311
  Receipt Date: 20140312
  Transmission Date: 20141002
  Serious: Yes (Other)
  Sender: FDA-Public Use
  Company Number: US-RB-063787-14

PATIENT
  Age: 79 Year
  Sex: Male

DRUGS (2)
  1. MUCINEX MAXIMUM STRENGTH [Suspect]
     Indication: PRODUCT USED FOR UNKNOWN INDICATION
     Dosage: PATIENT TOOK LAST DOSE AT 8:00 P.M. ON 27-FEB-2014. PATIENT TOOK APPROXIMATELY 7-8 DOSES.
     Route: 048
     Dates: start: 20140224
  2. BACTRIM [Suspect]
     Indication: INFECTION
     Dosage: UNKNOWN

REACTIONS (4)
  - Anuria [Recovered/Resolved]
  - Dysuria [Recovered/Resolved]
  - Constipation [Recovered/Resolved]
  - Abdominal pain upper [Recovered/Resolved]
